FAERS Safety Report 7149437-0 (Version None)
Quarter: 2010Q4

REPORT INFORMATION
  Report Type: 
  Country: None (occurrence: None)
  Receive Date: 20101209
  Receipt Date: 20101011
  Transmission Date: 20110411
  Serious: No
  Sender: FDA-Public Use
  Company Number: US-KINGPHARMUSA00001-K201001261

PATIENT
  Age: 55 Year
  Sex: Female
  Weight: 65.306 kg

DRUGS (4)
  1. EMBEDA [Suspect]
     Indication: PAIN
     Dosage: 20 MG, UNK
     Route: 048
     Dates: start: 20100101, end: 20100101
  2. EMBEDA [Suspect]
     Indication: NEUROPATHY PERIPHERAL
     Dosage: 100 MG, BID
     Route: 048
     Dates: start: 20100801, end: 20100923
  3. EMBEDA [Suspect]
     Indication: PANCREATITIS
     Dosage: 80 MG, TID
     Route: 048
     Dates: start: 20100924
  4. CORGARD [Concomitant]
     Indication: MIGRAINE
     Dosage: 40 MG, QAM
     Route: 048

REACTIONS (4)
  - BREAKTHROUGH PAIN [None]
  - DRUG EFFECT DECREASED [None]
  - DRUG INEFFECTIVE [None]
  - NAUSEA [None]
